FAERS Safety Report 14860790 (Version 1)
Quarter: 2018Q2

REPORT INFORMATION
  Report Type: Spontaneous
  Country: AU (occurrence: AU)
  Receive Date: 20180508
  Receipt Date: 20180508
  Transmission Date: 20180711
  Serious: Yes (Other)
  Sender: FDA-Public Use
  Company Number: AU-BAYER-2018-086025

PATIENT
  Sex: Male

DRUGS (1)
  1. CLARATYNE [Suspect]
     Active Substance: LORATADINE

REACTIONS (1)
  - Long QT syndrome [None]
